FAERS Safety Report 13426906 (Version 1)
Quarter: 2017Q2

REPORT INFORMATION
  Report Type: Spontaneous
  Country: US (occurrence: US)
  Receive Date: 20170411
  Receipt Date: 20170411
  Transmission Date: 20170830
  Serious: Yes (Other)
  Sender: FDA-Public Use
  Company Number: None

PATIENT
  Age: 24 Year
  Sex: Female

DRUGS (1)
  1. LUPRON DEPOT [Suspect]
     Active Substance: LEUPROLIDE ACETATE
     Indication: ENDOMETRIOSIS
     Dosage: ?          OTHER FREQUENCY:EVERY 4 WEEKS;?
     Route: 030
     Dates: start: 20170311

REACTIONS (5)
  - Insomnia [None]
  - Headache [None]
  - Nausea [None]
  - Pruritus [None]
  - Peripheral swelling [None]

NARRATIVE: CASE EVENT DATE: 20170312
